FAERS Safety Report 19643913 (Version 1)
Quarter: 2021Q3

REPORT INFORMATION
  Report Type: Spontaneous
  Country: BA (occurrence: BA)
  Receive Date: 20210731
  Receipt Date: 20210731
  Transmission Date: 20211014
  Serious: Yes (Hospitalization, Other)
  Sender: FDA-Public Use
  Company Number: BA-LUPIN PHARMACEUTICALS INC.-2021-13474

PATIENT
  Age: 60 Year
  Sex: Male

DRUGS (6)
  1. PREDNISONE. [Suspect]
     Active Substance: PREDNISONE
     Indication: GLOMERULONEPHRITIS MEMBRANOUS
     Dosage: 0.5 MILLIGRAM/KILOGRAM, QD (TREATMENT WAS BASED ON THE ALTERNATING PULSE OF METHYLPREDNISOLONE, ORAL
     Route: 048
  2. CHLORAMBUCIL [Suspect]
     Active Substance: CHLORAMBUCIL
     Indication: GLOMERULONEPHRITIS MEMBRANOUS
     Dosage: 0.2 MILLIGRAM/KILOGRAM, QD (TREATMENT WAS BASED ON THE ALTERNATING PULSE OF METHYLPREDNISOLONE, ORAL
     Route: 065
  3. PREDNISONE. [Suspect]
     Active Substance: PREDNISONE
     Dosage: UNK (DURING THE SECOND REGIMEN, CONTINUED IN THE DIVIDED DAILY DOSE IN TWO SEPARATE DOSE TWICE DAILY
     Route: 048
  4. METHYLPREDNISOLONE. [Suspect]
     Active Substance: METHYLPREDNISOLONE
     Indication: GLOMERULONEPHRITIS MEMBRANOUS
     Dosage: 1 GRAM, QD 1 GRAM (TREATMENT WAS BASED ON THE ALTERNATING PULSE OF METHYLPREDNISOLONE, ORAL PREDNISO
     Route: 042
  5. METHYLPREDNISOLONE. [Suspect]
     Active Substance: METHYLPREDNISOLONE
     Dosage: 500 MILLIGRAM, QD (ON THE FIFTH MONTH OF TRETAMENT)
     Route: 042
  6. CHLORAMBUCIL [Suspect]
     Active Substance: CHLORAMBUCIL
     Dosage: 0.15 MILLIGRAM/KILOGRAM, QD (THE NEXT DOSE OF CHLORAMBUCIL, THE FORTH MONTH OF TREATMENT)
     Route: 065

REACTIONS (2)
  - Diabetes mellitus [Recovered/Resolved]
  - Pulmonary embolism [Recovered/Resolved]
